FAERS Safety Report 12494022 (Version 2)
Quarter: 2016Q2

REPORT INFORMATION
  Report Type: Spontaneous
  Country: CN (occurrence: CN)
  Receive Date: 20160623
  Receipt Date: 20160628
  Transmission Date: 20160815
  Serious: No
  Sender: FDA-Public Use
  Company Number: CN-009507513-1507CHN011938

PATIENT
  Age: 36 Year
  Sex: Female
  Weight: 45 kg

DRUGS (20)
  1. BO ZHI TANG TAI ZHU SHE YE [Concomitant]
     Indication: IMMUNE ENHANCEMENT THERAPY
     Dosage: 10 ML/CC , QD
     Route: 041
     Dates: start: 20150602, end: 20150607
  2. POTASSIUM ASPARTATE [Concomitant]
     Active Substance: POTASSIUM ASPARTATE
     Indication: MINERAL SUPPLEMENTATION
     Dosage: 10 ML/CC, QD
     Route: 041
     Dates: start: 20150602, end: 20150604
  3. XIAO AI PING PIAN [Concomitant]
     Indication: NEOPLASM PROPHYLAXIS
     Dosage: 20 ML/CC, QD
     Route: 041
     Dates: start: 20150602, end: 20150607
  4. MANNITOL. [Concomitant]
     Active Substance: MANNITOL
     Indication: FLUID RETENTION
     Dosage: 250 ML/CC, QD
     Route: 041
     Dates: start: 20150603, end: 20150604
  5. DEXTROSE (+) ELECTROLYTES (UNSPECIFIED) [Concomitant]
     Dosage: 500 ML/CC, QD
     Route: 041
     Dates: start: 20150604, end: 20150605
  6. DEXAMETHASONE SODIUM PHOSPHATE. [Concomitant]
     Active Substance: DEXAMETHASONE SODIUM PHOSPHATE
     Indication: PROPHYLACTIC CHEMOTHERAPY
     Dosage: 10 ML/CC, QD
     Route: 041
     Dates: start: 20150603, end: 20150605
  7. CYANOCOBALAMIN. [Concomitant]
     Active Substance: CYANOCOBALAMIN
     Indication: VITAMIN SUPPLEMENTATION
     Dosage: 2 ML/CC, ONCE
     Route: 030
     Dates: start: 20150601, end: 20150601
  8. GEMCITABINE HYDROCHLORIDE. [Suspect]
     Active Substance: GEMCITABINE HYDROCHLORIDE
     Indication: CHEMOTHERAPY
     Dosage: 1.7 G, TREATMENT REGIMEN GP, TREATMENT CYCLE I
     Route: 041
     Dates: start: 20150603, end: 20150617
  9. PALONOSETRON HYDROCHLORIDE. [Concomitant]
     Active Substance: PALONOSETRON HYDROCHLORIDE
     Indication: PROPHYLAXIS OF NAUSEA AND VOMITING
     Dosage: 0.25 MG, QD
     Route: 042
     Dates: start: 20150603, end: 20150605
  10. EMEND [Suspect]
     Active Substance: APREPITANT
     Indication: PROPHYLAXIS OF NAUSEA AND VOMITING
     Dosage: (DAY 1)125 MG, ONCE
     Route: 048
     Dates: start: 20150603, end: 20150603
  11. EMEND [Suspect]
     Active Substance: APREPITANT
     Dosage: (DAY 2 AND DAY 3) 80 MG, ONCE
     Route: 048
     Dates: start: 20150604, end: 20150605
  12. SODIUM BICARBONATE. [Concomitant]
     Active Substance: SODIUM BICARBONATE
     Indication: PH BODY FLUID INCREASED
     Dosage: 12.5, G, QD
     Route: 041
     Dates: start: 20150602, end: 20150604
  13. DEXTROSE (+) ELECTROLYTES (UNSPECIFIED) [Concomitant]
     Indication: BLOOD ELECTROLYTES ABNORMAL
     Dosage: 500 ML/CC, QD
     Route: 041
     Dates: start: 20150602, end: 20150604
  14. DEXAMETHASONE SODIUM PHOSPHATE. [Concomitant]
     Active Substance: DEXAMETHASONE SODIUM PHOSPHATE
     Indication: PROPHYLAXIS OF NAUSEA AND VOMITING
  15. ETHAMSYLATE [Concomitant]
     Active Substance: ETHAMSYLATE
     Indication: PLATELET COUNT INCREASED
     Dosage: 1.5 G, BID
     Route: 041
     Dates: start: 20150604, end: 20150605
  16. SODIUM CHLORIDE. [Concomitant]
     Active Substance: SODIUM CHLORIDE
     Indication: MINERAL SUPPLEMENTATION
     Dosage: 500 ML/CC, QD
     Route: 041
     Dates: start: 20150602, end: 20150604
  17. POTASSIUM (UNSPECIFIED) [Concomitant]
     Active Substance: POTASSIUM
     Indication: MINERAL SUPPLEMENTATION
     Dosage: 10 ML/CC , QD
     Route: 041
     Dates: start: 20150602, end: 20150604
  18. POTASSIUM (UNSPECIFIED) [Concomitant]
     Active Substance: POTASSIUM
     Dosage: 10 ML, QD
     Route: 041
     Dates: start: 20150604, end: 20150605
  19. CISPLATIN. [Suspect]
     Active Substance: CISPLATIN
     Indication: CHEMOTHERAPY
     Dosage: 100 MG, UNK; TREATMENT REGIMEN GP, TREATMENT CYCLE I
     Route: 041
     Dates: start: 20150603, end: 20150604
  20. METOCLOPRAMIDE HYDROCHLORIDE. [Concomitant]
     Active Substance: METOCLOPRAMIDE HYDROCHLORIDE
     Indication: PROPHYLAXIS OF NAUSEA AND VOMITING
     Dosage: 10 MG, QD
     Route: 030
     Dates: start: 20150603, end: 20150605

REACTIONS (1)
  - Constipation [Recovered/Resolved]

NARRATIVE: CASE EVENT DATE: 20150605
